FAERS Safety Report 26073339 (Version 1)
Quarter: 2025Q4

REPORT INFORMATION
  Report Type: Spontaneous
  Country: US (occurrence: US)
  Receive Date: 20251121
  Receipt Date: 20251121
  Transmission Date: 20260117
  Serious: No
  Sender: OTSUKA
  Company Number: US-MMM-Otsuka-Q9ACE23I

PATIENT
  Age: 67 Year
  Sex: Female
  Weight: 63.5 kg

DRUGS (1)
  1. NUEDEXTA [Suspect]
     Active Substance: DEXTROMETHORPHAN HYDROBROMIDE\QUINIDINE SULFATE
     Indication: Amyotrophic lateral sclerosis
     Dosage: 1 DF (20-10 MG), BID (A SAMPLE BOTTLE OF 13 CAPSULES)
     Route: 065
     Dates: start: 20250304

REACTIONS (3)
  - Product use in unapproved indication [Unknown]
  - Inability to afford medication [Unknown]
  - Therapy interrupted [Not Recovered/Not Resolved]

NARRATIVE: CASE EVENT DATE: 20250301
